FAERS Safety Report 23281710 (Version 6)
Quarter: 2025Q1

REPORT INFORMATION
  Report Type: Report from Study
  Country: GB (occurrence: GB)
  Receive Date: 20231211
  Receipt Date: 20250224
  Transmission Date: 20250409
  Serious: Yes (Hospitalization, Other)
  Sender: AMGEN
  Company Number: GB-Vifor (International) Inc.-VIT-2023-09535

PATIENT
  Age: 20 Year
  Sex: Male
  Weight: 106.6 kg

DRUGS (28)
  1. AVACOPAN [Suspect]
     Active Substance: AVACOPAN
     Indication: Anti-neutrophil cytoplasmic antibody positive vasculitis
     Dosage: TWICE DAILY (BD)
     Route: 048
     Dates: start: 20231031, end: 20231201
  2. HUMAN PLASMA [Concomitant]
     Active Substance: HUMAN PLASMA
     Indication: Anti-neutrophil cytoplasmic antibody positive vasculitis
     Route: 042
     Dates: start: 20231031, end: 20231106
  3. PREDNISOLONE [Concomitant]
     Active Substance: PREDNISOLONE
     Indication: Anti-neutrophil cytoplasmic antibody positive vasculitis
     Dosage: 60,MG,UNK
     Route: 048
     Dates: start: 20231031, end: 20231102
  4. PREDNISOLONE [Concomitant]
     Active Substance: PREDNISOLONE
     Dosage: COMPLETION OF PLANNED COURSE
     Route: 048
     Dates: start: 20231103, end: 20231109
  5. PREDNISOLONE [Concomitant]
     Active Substance: PREDNISOLONE
     Dosage: COMPLETION OF PLANNED COURSE
     Route: 048
     Dates: start: 20231124, end: 20231204
  6. PREDNISOLONE [Concomitant]
     Active Substance: PREDNISOLONE
     Dosage: COMPLETION OF PLANNED COURSE
     Route: 048
     Dates: start: 20231201, end: 20231229
  7. PREDNISOLONE [Concomitant]
     Active Substance: PREDNISOLONE
     Dosage: COMPLETION OF PLANNED COURSE.
     Route: 048
     Dates: start: 20231230, end: 20240112
  8. PREDNISOLONE [Concomitant]
     Active Substance: PREDNISOLONE
     Dosage: COMPLETION OF PLANNED COURSE
     Route: 048
     Dates: start: 20240113, end: 20240126
  9. PREDNISOLONE [Concomitant]
     Active Substance: PREDNISOLONE
     Dosage: 15,MG,OD
     Route: 048
     Dates: start: 20240202, end: 20240628
  10. PREDNISOLONE [Concomitant]
     Active Substance: PREDNISOLONE
     Dosage: 40.0,MG,OD
     Route: 048
     Dates: start: 20240628, end: 20240712
  11. PREDNISOLONE [Concomitant]
     Active Substance: PREDNISOLONE
     Dosage: 30,MG,OD
     Route: 048
     Dates: start: 20240414, end: 20240423
  12. PREDNISOLONE [Concomitant]
     Active Substance: PREDNISOLONE
     Dosage: 60.0,MG,OD
     Route: 048
     Dates: start: 20240712, end: 20240823
  13. PREDNISOLONE [Concomitant]
     Active Substance: PREDNISOLONE
     Dosage: 25.0,MG,OD, COMPLETION OF PLANNED COURSE
     Route: 048
     Dates: start: 20240824, end: 20240906
  14. PREDNISOLONE [Concomitant]
     Active Substance: PREDNISOLONE
     Dosage: 20.0,MG,OD, COMPLETION OF PLANNED COURSE
     Route: 048
     Dates: start: 20240907, end: 20241007
  15. PREDNISOLONE [Concomitant]
     Active Substance: PREDNISOLONE
     Dosage: 15.0,MG,OD, COMPLETION OF PLANNED COURSE
     Route: 048
     Dates: start: 20241008, end: 20241101
  16. PREDNISOLONE [Concomitant]
     Active Substance: PREDNISOLONE
     Dosage: 10.0,MG,OD, COMPLETION OF PLANNED COURSE
     Route: 048
     Dates: start: 20241102
  17. METHYLPREDNISOLONE [Concomitant]
     Active Substance: METHYLPREDNISOLONE
     Indication: Anti-neutrophil cytoplasmic antibody positive vasculitis
     Dosage: UNKNOWN DOSE GRAM ONCE ONLY
     Route: 042
     Dates: start: 20231204, end: 20231204
  18. COTRIMOXAZOLE [Concomitant]
     Active Substance: SULFAMETHOXAZOLE\TRIMETHOPRIM
     Indication: Infection prophylaxis
     Dosage: UNKNOWN DOSE IN MG
     Route: 048
     Dates: start: 20231031
  19. DEXAMETHASONE [Concomitant]
     Active Substance: DEXAMETHASONE
     Indication: Episcleritis
     Dosage: 1,DROP,4 TIMES A DAY
     Route: 061
     Dates: start: 20231113, end: 20240503
  20. OMEPRAZOLE [Concomitant]
     Active Substance: OMEPRAZOLE
     Indication: Prophylaxis against gastrointestinal ulcer
     Dosage: ORAL (PO)
     Route: 048
     Dates: start: 20231107
  21. CALCIUM CARBONATE\CHOLECALCIFEROL [Concomitant]
     Active Substance: CALCIUM CARBONATE\CHOLECALCIFEROL
     Indication: Vitamin supplementation
     Dosage: 2.5,G,QD
     Route: 048
     Dates: start: 20231125
  22. MYCOPHENOLIC ACID [Concomitant]
     Active Substance: MYCOPHENOLIC ACID
     Indication: Anti-neutrophil cytoplasmic antibody positive vasculitis
     Dosage: 1000.0 MG, BID
     Route: 048
     Dates: start: 20240628
  23. CYCLOPHOSPHAMIDE [Concomitant]
     Active Substance: CYCLOPHOSPHAMIDE
     Indication: Anti-neutrophil cytoplasmic antibody positive vasculitis
     Dosage: COMPLETION OF PLANNED COURSE
     Route: 042
     Dates: start: 20231101, end: 20231114
  24. RITUXIMAB [Concomitant]
     Active Substance: RITUXIMAB
     Indication: Anti-neutrophil cytoplasmic antibody positive vasculitis
     Route: 042
     Dates: start: 20231107, end: 20231107
  25. RITUXIMAB [Concomitant]
     Active Substance: RITUXIMAB
     Dates: start: 20231121, end: 20231121
  26. RITUXIMAB [Concomitant]
     Active Substance: RITUXIMAB
     Dates: start: 20231204, end: 20231204
  27. RITUXIMAB [Concomitant]
     Active Substance: RITUXIMAB
     Dates: start: 20240422, end: 20240422
  28. RITUXIMAB [Concomitant]
     Active Substance: RITUXIMAB
     Dates: start: 20240920, end: 20240920

REACTIONS (5)
  - Epididymitis [Recovered/Resolved]
  - Lower respiratory tract infection [Recovered/Resolved]
  - Blood creatinine increased [Not Recovered/Not Resolved]
  - C-reactive protein increased [Recovering/Resolving]
  - Facial nerve disorder [Recovered/Resolved]

NARRATIVE: CASE EVENT DATE: 20231124
